FAERS Safety Report 24963214 (Version 2)
Quarter: 2025Q1

REPORT INFORMATION
  Report Type: Spontaneous
  Country: US (occurrence: US)
  Receive Date: 20250213
  Receipt Date: 20250217
  Transmission Date: 20250409
  Serious: No
  Sender: NOVO NORDISK
  Company Number: US-NOVOPROD-1366337

PATIENT
  Sex: Female

DRUGS (2)
  1. OZEMPIC [Suspect]
     Active Substance: SEMAGLUTIDE
     Indication: Fat tissue decreased
  2. OZEMPIC [Suspect]
     Active Substance: SEMAGLUTIDE
     Indication: Blood glucose decreased
     Route: 058
     Dates: start: 20250203

REACTIONS (4)
  - Food aversion [Unknown]
  - Diarrhoea [Unknown]
  - Vomiting [Unknown]
  - Glycosylated haemoglobin increased [Unknown]
